FAERS Safety Report 6829031-9 (Version None)
Quarter: 2010Q3

REPORT INFORMATION
  Report Type: 
  Country: None (occurrence: None)
  Receive Date: 20100706
  Receipt Date: 20080612
  Transmission Date: 20110219
  Serious: Yes (Hospitalization)
  Sender: FDA-Public Use
  Company Number: 2008AL007358

PATIENT
  Age: 62 Year
  Sex: Male

DRUGS (3)
  1. CETIRIZINE HCL [Suspect]
     Indication: PRURITUS
     Dosage: 10MG;QD;
     Dates: start: 20071115, end: 20071121
  2. HYDROXYZINE [Concomitant]
  3. ZOPICLONE [Concomitant]

REACTIONS (1)
  - RASH GENERALISED [None]
